FAERS Safety Report 8572870-7 (Version None)
Quarter: 2012Q2

REPORT INFORMATION
  Report Type: 
  Country: None (occurrence: None)
  Receive Date: 20120423
  Receipt Date: 20100910
  Transmission Date: 20120825
  Serious: Yes (Hospitalization)
  Sender: FDA-Public Use
  Company Number: PHHY2010US60411

PATIENT
  Age: 88 Year
  Sex: Male
  Weight: 76.8 kg

DRUGS (1)
  1. EXJADE [Suspect]
     Indication: LEUKOCYTOSIS
     Dosage: 1500 MG, DAILY, ORAL
     Dates: end: 20100804

REACTIONS (1)
  - CHOLELITHIASIS [None]
